FAERS Safety Report 10075245 (Version 1)
Quarter: 2014Q2

REPORT INFORMATION
  Report Type: Spontaneous
  Country: US (occurrence: US)
  Receive Date: 20140414
  Receipt Date: 20140414
  Transmission Date: 20141212
  Serious: No
  Sender: FDA-Public Use
  Company Number: US-BIOGENIDEC-2014BI030329

PATIENT
  Age: 56 Year
  Sex: Female

DRUGS (13)
  1. TECFIDERA [Suspect]
     Indication: MULTIPLE SCLEROSIS
     Route: 048
     Dates: start: 20140322
  2. BACLOFEN [Concomitant]
  3. TRIAMTERENE-HCTZ [Concomitant]
  4. ESTRACE [Concomitant]
  5. PROBIOTIC [Concomitant]
  6. CHLOROPHYLL [Concomitant]
  7. AMPYRA [Concomitant]
  8. VITAMIN D-3 [Concomitant]
  9. FISH OIL [Concomitant]
  10. MAGNESIUM [Concomitant]
  11. PROVIGIL [Concomitant]
  12. CO Q-10 [Concomitant]
  13. WELCHOL [Concomitant]

REACTIONS (2)
  - Weight increased [Unknown]
  - Gastrointestinal sounds abnormal [Unknown]
